FAERS Safety Report 9886645 (Version 1)
Quarter: 2014Q1

REPORT INFORMATION
  Report Type: Spontaneous
  Country: GR (occurrence: GR)
  Receive Date: 20140210
  Receipt Date: 20140210
  Transmission Date: 20141002
  Serious: Yes (Other)
  Sender: FDA-Public Use
  Company Number: PHHY2014GR012397

PATIENT
  Sex: Female
  Weight: 50 kg

DRUGS (13)
  1. CICLOSPORIN [Suspect]
     Indication: IMMUNOSUPPRESSION
     Dosage: 4 MG/KG, PER DAY
  2. CICLOSPORIN [Suspect]
     Dosage: 2 MG/KG, PER DAY
  3. CICLOSPORIN [Suspect]
     Dosage: 75 MG, PER DAY
  4. CICLOSPORIN [Suspect]
     Dosage: 100 MG, PER DAY
  5. COLCHICINE [Suspect]
     Dosage: 1.5 MG, PER DAY
  6. COLCHICINE [Suspect]
     Dosage: 1 MG, PER DAY
  7. COLCHICINE [Suspect]
     Dosage: 0.5 MG, PER DAY
  8. COLCHICINE [Suspect]
     Dosage: 1 MG, PER DAY
  9. METHYLPREDNISOLONE [Suspect]
     Indication: IMMUNOSUPPRESSION
     Dosage: 4 MG, PER DAY
  10. METHYLPREDNISOLONE [Suspect]
     Dosage: 6 MG, PER DAY
  11. METHYLPREDNISOLONE [Suspect]
     Dosage: 8 MG, PER DAY
  12. METHYLPREDNISOLONE [Suspect]
     Dosage: 4 MG, PER DAY
  13. AZATHIOPRINE [Suspect]
     Indication: IMMUNOSUPPRESSION
     Dosage: 75 MG, PER DAY

REACTIONS (11)
  - Kidney transplant rejection [Unknown]
  - Renal failure acute [Unknown]
  - Abdominal pain [Recovered/Resolved]
  - Diarrhoea [Recovered/Resolved]
  - Decreased appetite [Recovered/Resolved]
  - Vomiting [Recovered/Resolved]
  - Weight decreased [Recovered/Resolved]
  - Muscular weakness [Recovered/Resolved]
  - Normal newborn [Unknown]
  - Maternal exposure during pregnancy [Unknown]
  - Delivery [Unknown]
